FAERS Safety Report 7608089-3 (Version None)
Quarter: 2011Q3

REPORT INFORMATION
  Report Type: 
  Country: None (occurrence: None)
  Receive Date: 20110706
  Receipt Date: 20110624
  Transmission Date: 20111222
  Serious: Yes (Hospitalization, Other)
  Sender: FDA-Public Use
  Company Number: 2010SP038530

PATIENT
  Age: 38 Year
  Sex: Female
  Weight: 98.4306 kg

DRUGS (1)
  1. NUVARING [Suspect]
     Indication: CONTRACEPTION
     Dates: start: 20020101, end: 20080701

REACTIONS (14)
  - HEART RATE INCREASED [None]
  - GASTRIC BANDING [None]
  - POST-TRAUMATIC STRESS DISORDER [None]
  - ANXIETY [None]
  - VISION BLURRED [None]
  - GASTRIC BANDING REVERSAL [None]
  - INFECTION [None]
  - HEAD INJURY [None]
  - PULMONARY EMBOLISM [None]
  - ANEURYSM [None]
  - FEAR OF DEATH [None]
  - AGORAPHOBIA [None]
  - SYNCOPE [None]
  - HEADACHE [None]
